FAERS Safety Report 7676127-8 (Version None)
Quarter: 2011Q3

REPORT INFORMATION
  Report Type: 
  Country: None (occurrence: None)
  Receive Date: 20110811
  Receipt Date: 20110801
  Transmission Date: 20111222
  Serious: Yes (Hospitalization, Other)
  Sender: FDA-Public Use
  Company Number: US-JNJFOC-20100300787

PATIENT
  Sex: Female
  Weight: 12 kg

DRUGS (4)
  1. REMICADE [Suspect]
     Indication: COLITIS ULCERATIVE
     Route: 042
     Dates: start: 20090909
  2. REMICADE [Suspect]
     Route: 042
     Dates: start: 20091019
  3. ZOSYN [Concomitant]
  4. PREDNISONE [Concomitant]

REACTIONS (1)
  - COLITIS ULCERATIVE [None]
